FAERS Safety Report 8524981-X (Version None)
Quarter: 2012Q3

REPORT INFORMATION
  Report Type: 
  Country: None (occurrence: None)
  Receive Date: 20120720
  Receipt Date: 20120716
  Transmission Date: 20120928
  Serious: No
  Sender: FDA-Public Use
  Company Number: US-BAYER-2012-071782

PATIENT

DRUGS (1)
  1. BETASERON [Suspect]

REACTIONS (1)
  - INJECTION SITE REACTION [None]
